FAERS Safety Report 9864368 (Version 1)
Quarter: 2014Q1

REPORT INFORMATION
  Report Type: Spontaneous
  Country: US (occurrence: US)
  Receive Date: 20140203
  Receipt Date: 20140203
  Transmission Date: 20141002
  Serious: No
  Sender: FDA-Public Use
  Company Number: US-AMGEN-USASP2014001219

PATIENT
  Age: 53 Year
  Sex: Female

DRUGS (3)
  1. ENBREL [Suspect]
     Indication: RHEUMATOID ARTHRITIS
     Dosage: 50 MG, QWK
     Route: 065
     Dates: start: 20130903
  2. ENBREL [Suspect]
     Dosage: UNK
     Route: 065
  3. PREDNISONE [Concomitant]
     Dosage: 5 MG, TID

REACTIONS (8)
  - Joint swelling [Not Recovered/Not Resolved]
  - Joint warmth [Not Recovered/Not Resolved]
  - Arthralgia [Not Recovered/Not Resolved]
  - Local swelling [Not Recovered/Not Resolved]
  - Swelling face [Not Recovered/Not Resolved]
  - Nodule [Not Recovered/Not Resolved]
  - Arthritis [Not Recovered/Not Resolved]
  - Muscle tightness [Not Recovered/Not Resolved]
